FAERS Safety Report 9870077 (Version 1)
Quarter: 2014Q1

REPORT INFORMATION
  Report Type: Spontaneous
  Country: US (occurrence: US)
  Receive Date: 20140205
  Receipt Date: 20140205
  Transmission Date: 20141002
  Serious: No
  Sender: FDA-Public Use
  Company Number: US-GLAXOSMITHKLINE-A1053934A

PATIENT
  Sex: Female

DRUGS (13)
  1. VALTREX [Suspect]
     Indication: HERPES VIRUS INFECTION
     Dosage: 1000MG UNKNOWN
     Route: 048
  2. MINOCYCLINE [Concomitant]
  3. MIDODRINE [Concomitant]
  4. PROMETHAZINE [Concomitant]
  5. TRILEPTAL [Concomitant]
  6. BACLOFEN [Concomitant]
  7. SYNTHROID [Concomitant]
  8. CYMBALTA [Concomitant]
  9. LAMOTRIGINE [Concomitant]
  10. CYTOMEL [Concomitant]
  11. TOPROL [Concomitant]
  12. NALTREXONE [Concomitant]
  13. WELCHOL [Concomitant]

REACTIONS (1)
  - Drug ineffective [Unknown]
